FAERS Safety Report 7583779-X (Version None)
Quarter: 2011Q2

REPORT INFORMATION
  Report Type: 
  Country: None (occurrence: None)
  Receive Date: 20110630
  Receipt Date: 20100323
  Transmission Date: 20111010
  Serious: No
  Sender: FDA-Public Use
  Company Number: US-BAYER-201018160NA

PATIENT
  Sex: Female

DRUGS (1)
  1. MIRENA [Suspect]

REACTIONS (4)
  - PROCEDURAL PAIN [None]
  - MEDICAL DEVICE COMPLICATION [None]
  - AMENORRHOEA [None]
  - VAGINAL HAEMORRHAGE [None]
